FAERS Safety Report 6636608-2 (Version None)
Quarter: 2010Q1

REPORT INFORMATION
  Report Type: 
  Country: None (occurrence: None)
  Receive Date: 20100226
  Receipt Date: 20090824
  Transmission Date: 20100710
  Serious: Yes (Other)
  Sender: FDA-Public Use
  Company Number: 285498

PATIENT
  Age: 62 Year
  Sex: Male

DRUGS (2)
  1. NOVOSEVEN [Suspect]
     Indication: SURGERY
     Dosage: INTRAVENOUS
     Route: 042
  2. FEIBA [Suspect]
     Indication: SURGERY

REACTIONS (1)
  - MYOCARDIAL INFARCTION [None]
